FAERS Safety Report 7332932-9 (Version None)
Quarter: 2011Q1

REPORT INFORMATION
  Report Type: 
  Country: None (occurrence: None)
  Receive Date: 20110304
  Receipt Date: 20110301
  Transmission Date: 20110831
  Serious: Yes (Other)
  Sender: FDA-Public Use
  Company Number: CHPA2011US03426

PATIENT
  Age: 82 Year
  Sex: Female
  Weight: 43.084 kg

DRUGS (4)
  1. EXCEDRIN (MIGRAINE) [Suspect]
     Indication: MIGRAINE
     Dosage: 2 CAPLETS, QD
     Route: 048
     Dates: start: 20090101
  2. ARICEPT [Concomitant]
     Indication: MEMORY IMPAIRMENT
     Dosage: UNK, UNK
  3. ANTIDEPRESSANTS [Concomitant]
     Indication: NERVOUSNESS
     Dosage: UNK, UNK
  4. EXCEDRIN (MIGRAINE) [Suspect]
     Indication: HEADACHE
     Dosage: 2 CAPLETS, QD
     Route: 048

REACTIONS (2)
  - DISEASE RECURRENCE [None]
  - DRUG DEPENDENCE [None]
